FAERS Safety Report 7283539-3 (Version None)
Quarter: 2011Q1

REPORT INFORMATION
  Report Type: 
  Country: None (occurrence: None)
  Receive Date: 20110209
  Receipt Date: 20110131
  Transmission Date: 20110831
  Serious: Yes (Hospitalization)
  Sender: FDA-Public Use
  Company Number: PT-TEVA-265911ISR

PATIENT
  Sex: Female
  Weight: 55.8 kg

DRUGS (10)
  1. BROMAZEPAM [Concomitant]
     Indication: INSOMNIA
     Route: 048
     Dates: start: 20100501
  2. DEXAMETHASONE [Suspect]
     Indication: MULTIPLE MYELOMA
     Dates: start: 20100604
  3. FENTANYL [Concomitant]
     Indication: ANALGESIC THERAPY
     Route: 048
     Dates: start: 20100501
  4. OMEPRAZOLE [Concomitant]
     Route: 048
     Dates: start: 20100510
  5. ACETYLCYSTEINE [Concomitant]
     Route: 048
  6. HYOSCINE HBR HYT [Concomitant]
     Indication: PULMONARY EMBOLISM
  7. EPOGEN [Concomitant]
     Indication: ANAEMIA
     Route: 058
     Dates: start: 20100510
  8. ASPIRIN [Concomitant]
     Indication: THROMBOSIS PROPHYLAXIS
     Route: 048
     Dates: start: 20100510
  9. CLONIXIN [Concomitant]
     Indication: BONE PAIN
     Route: 042
     Dates: start: 20100607, end: 20100615
  10. LENALIDOMIDE [Suspect]
     Indication: MULTIPLE MYELOMA
     Route: 048
     Dates: start: 20100604

REACTIONS (1)
  - RESPIRATORY TRACT INFECTION [None]
